FAERS Safety Report 19755459 (Version 1)
Quarter: 2021Q3

REPORT INFORMATION
  Report Type: Spontaneous
  Country: US (occurrence: US)
  Receive Date: 20210827
  Receipt Date: 20210827
  Transmission Date: 20211014
  Serious: No
  Sender: FDA-Public Use
  Company Number: US-PFIZER INC-2021366608

PATIENT
  Age: 68 Year
  Sex: Male
  Weight: 99.79 kg

DRUGS (1)
  1. ATORVASTATIN CALCIUM. [Suspect]
     Active Substance: ATORVASTATIN CALCIUM
     Indication: BLOOD CHOLESTEROL
     Dosage: 40 MG, 1X/DAY (EVERY NIGHT BEFORE BED WITH WATER)

REACTIONS (3)
  - Gait disturbance [Recovered/Resolved]
  - Discomfort [Recovered/Resolved]
  - Pain [Unknown]
